FAERS Safety Report 12311874 (Version 1)
Quarter: 2016Q2

REPORT INFORMATION
  Report Type: Spontaneous
  Country: US (occurrence: US)
  Receive Date: 20160427
  Receipt Date: 20160427
  Transmission Date: 20160815
  Serious: No
  Sender: FDA-Public Use
  Company Number: US-009507513-1604USA010310

PATIENT
  Sex: Female

DRUGS (13)
  1. HUMALOG [Suspect]
     Active Substance: INSULIN LISPRO
  2. VITAMIN E [Suspect]
     Active Substance: .ALPHA.-TOCOPHEROL
  3. JANUVIA [Suspect]
     Active Substance: SITAGLIPTIN PHOSPHATE
     Dosage: UNK, UNKNOWN
     Route: 048
  4. LEVEMIR [Suspect]
     Active Substance: INSULIN DETEMIR
  5. ASCORBIC ACID. [Suspect]
     Active Substance: ASCORBIC ACID
  6. PRILOSEC [Suspect]
     Active Substance: OMEPRAZOLE MAGNESIUM
     Route: 048
  7. TOUJEO [Suspect]
     Active Substance: INSULIN GLARGINE
     Dosage: 50 UNITS, BID
  8. MELOXICAM. [Suspect]
     Active Substance: MELOXICAM
     Route: 048
  9. CRESTOR [Suspect]
     Active Substance: ROSUVASTATIN CALCIUM
  10. VITAMINS (UNSPECIFIED) [Suspect]
     Active Substance: VITAMINS
  11. VITAMIN D [Suspect]
     Active Substance: CHOLECALCIFEROL
  12. COZAAR [Suspect]
     Active Substance: LOSARTAN POTASSIUM
     Route: 048
  13. CALCIUM (UNSPECIFIED) [Suspect]
     Active Substance: CALCIUM

REACTIONS (12)
  - Spinal pain [Unknown]
  - Blood pressure increased [Unknown]
  - Confusional state [Unknown]
  - Glycosylated haemoglobin increased [Unknown]
  - Arthralgia [Unknown]
  - Blood glucose decreased [Unknown]
  - Headache [Unknown]
  - Arthritis [Unknown]
  - Stress [Unknown]
  - Pain [Unknown]
  - Nervousness [Unknown]
  - Blood glucose increased [Unknown]
